FAERS Safety Report 24432746 (Version 1)
Quarter: 2024Q4

REPORT INFORMATION
  Report Type: Spontaneous
  Country: CH (occurrence: CH)
  Receive Date: 20241014
  Receipt Date: 20241014
  Transmission Date: 20250115
  Serious: Yes (Hospitalization, Other)
  Sender: PFIZER
  Company Number: None

PATIENT
  Age: 56 Year
  Sex: Male
  Weight: 93 kg

DRUGS (12)
  1. SULFASALAZINE [Suspect]
     Active Substance: SULFASALAZINE
     Indication: Spondylitis
     Dosage: 1000 MG, 2X/DAY
     Route: 048
     Dates: start: 20240627, end: 20240813
  2. DICLOFENAC [Suspect]
     Active Substance: DICLOFENAC
     Indication: Analgesic therapy
     Dosage: 125 MG, 1X/DAY
     Route: 048
     Dates: end: 20240626
  3. DICLOFENAC [Suspect]
     Active Substance: DICLOFENAC
     Dosage: 125 MG, AS NEEDED
     Route: 048
     Dates: start: 20240627, end: 20240813
  4. IBUPROFEN [Suspect]
     Active Substance: IBUPROFEN
     Indication: Analgesic therapy
     Dosage: 1 DF
     Route: 048
     Dates: end: 20240808
  5. IBUPROFEN [Suspect]
     Active Substance: IBUPROFEN
     Dosage: 600 MG, 4X/DAY
     Route: 048
     Dates: start: 20240809, end: 20240813
  6. IBUPROFEN [Suspect]
     Active Substance: IBUPROFEN
     Dosage: 1 DF, SINGLE
     Route: 048
     Dates: start: 20240817, end: 20240817
  7. PREDNISOLONE [Concomitant]
     Active Substance: PREDNISOLONE
     Dosage: 20 MG, 1X/DAY
     Route: 048
     Dates: start: 20240710, end: 20240714
  8. PREDNISOLONE [Concomitant]
     Active Substance: PREDNISOLONE
     Dosage: 15 MG, 1X/DAY
     Route: 048
     Dates: start: 20240715, end: 20240718
  9. PREDNISOLONE [Concomitant]
     Active Substance: PREDNISOLONE
     Dosage: 10 MG, 1X/DAY
     Route: 048
     Dates: start: 20240719
  10. CALCIUM CARBONATE\CHOLECALCIFEROL [Concomitant]
     Active Substance: CALCIUM CARBONATE\CHOLECALCIFEROL
     Dosage: 500/800
  11. VALSARTAN AXAPHARM [Concomitant]
     Dosage: 80 MG, 1X/DAY
     Route: 048
  12. FLUTICASONE FUROATE\VILANTEROL TRIFENATATE [Concomitant]
     Active Substance: FLUTICASONE FUROATE\VILANTEROL TRIFENATATE
     Dosage: 1 DF, 1X/DAY
     Route: 055

REACTIONS (3)
  - Agranulocytosis [Recovered/Resolved]
  - Peritonsillar abscess [Unknown]
  - Off label use [Unknown]

NARRATIVE: CASE EVENT DATE: 20240627
